FAERS Safety Report 7969812-1 (Version None)
Quarter: 2011Q4

REPORT INFORMATION
  Report Type: 
  Country: None (occurrence: None)
  Receive Date: 20111212
  Receipt Date: 20111130
  Transmission Date: 20120403
  Serious: Yes (Hospitalization)
  Sender: FDA-Public Use
  Company Number: US-BAYER-201038569NA

PATIENT
  Age: 27 Year
  Sex: Female
  Weight: 70.295 kg

DRUGS (10)
  1. DROSPIRENONE AND ETHINYL ESTRADIOL [Suspect]
     Indication: CONTRACEPTION
     Dosage: UNK
     Dates: start: 20091213, end: 20100406
  2. IMODIUM [Concomitant]
     Dosage: UNK UNK, PRN
     Route: 048
  3. ETHINYLESTRADIOL W/NORGESTIMATE [Concomitant]
  4. OXYCODONE HCL [Concomitant]
  5. PHENERGAN [Concomitant]
     Dosage: UNK
     Route: 048
  6. DEPO-PROVERA [Concomitant]
     Dosage: UNK
     Dates: start: 20100101
  7. ROBAXIN [Concomitant]
     Dosage: UNK UNK, PRN
     Route: 048
  8. CIPROFLOXACIN [Concomitant]
     Dosage: UNK
     Route: 048
     Dates: start: 20100311
  9. PERCOCET-5 [Concomitant]
     Dosage: UNK UNK, PRN
     Route: 048
  10. ORTHO TRI-CYCLEN [Concomitant]

REACTIONS (3)
  - COLITIS ISCHAEMIC [None]
  - MENTAL DISORDER [None]
  - IRRITABLE BOWEL SYNDROME [None]
